FAERS Safety Report 5363032-5 (Version None)
Quarter: 2007Q2

REPORT INFORMATION
  Report Type: 
  Country: None (occurrence: None)
  Receive Date: 20070618
  Receipt Date: 20070606
  Transmission Date: 20071010
  Serious: Yes (Hospitalization, Other)
  Sender: FDA-Public Use
  Company Number: 234630K07USA

PATIENT
  Age: 46 Year
  Sex: Female

DRUGS (3)
  1. REBIF [Suspect]
     Indication: MULTIPLE SCLEROSIS
     Dosage: SEE IMAGE
     Route: 058
     Dates: start: 20060707, end: 20060801
  2. REBIF [Suspect]
     Indication: MULTIPLE SCLEROSIS
     Dosage: SEE IMAGE
     Route: 058
     Dates: start: 20060801, end: 20070301
  3. REBIF [Suspect]
     Indication: MULTIPLE SCLEROSIS
     Dosage: SEE IMAGE
     Route: 058
     Dates: start: 20070501

REACTIONS (10)
  - ABSCESS [None]
  - CLOSTRIDIAL INFECTION [None]
  - CONTUSION [None]
  - DEEP VEIN THROMBOSIS [None]
  - DIARRHOEA [None]
  - FALL [None]
  - HAEMARTHROSIS [None]
  - HAEMATOMA [None]
  - SPLENIC HAEMORRHAGE [None]
  - WHITE BLOOD CELL COUNT DECREASED [None]
